FAERS Safety Report 12776630 (Version 1)
Quarter: 2016Q3

REPORT INFORMATION
  Report Type: Spontaneous
  Country: US (occurrence: US)
  Receive Date: 20160923
  Receipt Date: 20160923
  Transmission Date: 20161109
  Serious: No
  Sender: FDA-Public Use
  Company Number: US-TARO-2016TAR00349

PATIENT
  Age: 69 Year
  Sex: Female
  Weight: 98.41 kg

DRUGS (7)
  1. HYDROCORTISONE VALERATE OINTMENT 0.2% [Suspect]
     Active Substance: HYDROCORTISONE VALERATE
     Dosage: UNK UNK, ONCE
     Route: 061
     Dates: start: 20160415, end: 20160415
  2. HYDROCORTISONE VALERATE OINTMENT 0.2% [Suspect]
     Active Substance: HYDROCORTISONE VALERATE
     Dosage: UNK UNK, 3X/DAY
     Route: 061
     Dates: start: 20160413, end: 20160413
  3. HYDROCORTISONE VALERATE OINTMENT 0.2% [Suspect]
     Active Substance: HYDROCORTISONE VALERATE
     Indication: SKIN IRRITATION
     Dosage: UNK UNK, TWICE
     Route: 061
     Dates: start: 20160412, end: 20160412
  4. SIMVASTATIN. [Concomitant]
     Active Substance: SIMVASTATIN
     Dosage: UNK
  5. HCTZ [Concomitant]
     Active Substance: HYDROCHLOROTHIAZIDE
     Dosage: UNK
  6. KLOR-CON [Concomitant]
     Active Substance: POTASSIUM CHLORIDE
  7. AMITRIPTYLINE AND HYDROXYCHLOROQUINE [Concomitant]
     Indication: IRRITABLE BOWEL SYNDROME
     Dosage: UNK

REACTIONS (10)
  - Skin irritation [Recovering/Resolving]
  - Blister [Recovering/Resolving]
  - Swelling [Recovering/Resolving]
  - Secretion discharge [Recovering/Resolving]
  - Inappropriate schedule of drug administration [Recovered/Resolved]
  - Pruritus [Recovering/Resolving]
  - Dermatitis [Recovering/Resolving]
  - Insomnia [Recovered/Resolved]
  - Reaction to drug excipients [Recovering/Resolving]
  - Erythema [Recovering/Resolving]

NARRATIVE: CASE EVENT DATE: 201604
